FAERS Safety Report 5532505-4 (Version None)
Quarter: 2007Q4

REPORT INFORMATION
  Report Type: 
  Country: None (occurrence: None)
  Receive Date: 20071203
  Receipt Date: 20071121
  Transmission Date: 20080405
  Serious: Yes (Other)
  Sender: FDA-Public Use
  Company Number: US-PFIZER INC-2007098879

PATIENT
  Age: 53 Year
  Sex: Female

DRUGS (10)
  1. LYRICA [Suspect]
     Indication: MIGRAINE
     Dates: start: 20071001, end: 20071120
  2. TOPAMAX [Suspect]
     Indication: MIGRAINE
  3. INDERAL [Concomitant]
  4. SYNTHROID [Concomitant]
  5. MAXZIDE [Concomitant]
  6. NEXIUM [Concomitant]
  7. FIORICET [Concomitant]
  8. LORTAB [Concomitant]
  9. AMBIEN [Concomitant]
  10. ACETYLSALICYLIC ACID SRT [Concomitant]

REACTIONS (8)
  - BALANCE DISORDER [None]
  - HYPERHIDROSIS [None]
  - HYPOAESTHESIA [None]
  - MALAISE [None]
  - ROAD TRAFFIC ACCIDENT [None]
  - TENSION [None]
  - VISUAL DISTURBANCE [None]
  - WEIGHT DECREASED [None]
